FAERS Safety Report 7388199-9 (Version None)
Quarter: 2011Q1

REPORT INFORMATION
  Report Type: 
  Country: None (occurrence: None)
  Receive Date: 20110324
  Receipt Date: 20110315
  Transmission Date: 20110831
  Serious: Yes (Other)
  Sender: FDA-Public Use
  Company Number: 029255

PATIENT
  Sex: Male
  Weight: 80 kg

DRUGS (3)
  1. NEURONTIN [Concomitant]
  2. TEGRETOL [Concomitant]
  3. LACOSAMIDE [Suspect]
     Indication: EPILEPSY
     Dosage: (350 MG, 100 MG + 250 MG ORAL)
     Route: 048
     Dates: start: 20090601

REACTIONS (3)
  - PAPULE [None]
  - PRURIGO [None]
  - PRURITUS [None]
